FAERS Safety Report 5950641-5 (Version None)
Quarter: 2008Q4

REPORT INFORMATION
  Report Type: 
  Country: None (occurrence: None)
  Receive Date: 20081112
  Receipt Date: 20081103
  Transmission Date: 20090506
  Serious: Yes (Other)
  Sender: FDA-Public Use
  Company Number: US-AVENTIS-200817592US

PATIENT
  Sex: Male

DRUGS (3)
  1. KETEK [Suspect]
     Indication: PNEUMONIA
     Dosage: DOSE: UNK
     Dates: start: 20051010, end: 20051020
  2. ASPIRIN [Concomitant]
     Dosage: DOSE: UNK
  3. IBUPROFEN TABLETS [Concomitant]
     Dosage: DOSE: UNK

REACTIONS (8)
  - COUGH [None]
  - DYSPNOEA [None]
  - HEPATITIS [None]
  - INSOMNIA [None]
  - LIVER FUNCTION TEST ABNORMAL [None]
  - PAIN [None]
  - PYREXIA [None]
  - YELLOW SKIN [None]
